FAERS Safety Report 7020464-7 (Version None)
Quarter: 2010Q3

REPORT INFORMATION
  Report Type: 
  Country: None (occurrence: None)
  Receive Date: 20100929
  Receipt Date: 20100924
  Transmission Date: 20110219
  Serious: Yes (Death)
  Sender: FDA-Public Use
  Company Number: US-ROCHE-724807

PATIENT
  Sex: Female
  Weight: 64.7 kg

DRUGS (2)
  1. HERCEPTIN [Suspect]
     Route: 042
     Dates: start: 20090310
  2. MORPHINE [Concomitant]
     Dates: start: 20100429, end: 20100501

REACTIONS (1)
  - BREAST CANCER METASTATIC [None]
